FAERS Safety Report 5233256-6 (Version None)
Quarter: 2007Q1

REPORT INFORMATION
  Report Type: 
  Country: None (occurrence: None)
  Receive Date: 20070206
  Receipt Date: 20070123
  Transmission Date: 20070707
  Serious: Yes (Other)
  Sender: FDA-Public Use
  Company Number: T200700083

PATIENT
  Age: 30 Year
  Sex: Female

DRUGS (1)
  1. METHADOSE [Suspect]

REACTIONS (3)
  - DRUG DIVERSION [None]
  - INTENTIONAL DRUG MISUSE [None]
  - SUICIDE ATTEMPT [None]
